FAERS Safety Report 10301588 (Version 4)
Quarter: 2014Q3

REPORT INFORMATION
  Report Type: Report from Study
  Country: CA (occurrence: CA)
  Receive Date: 20140714
  Receipt Date: 20140806
  Transmission Date: 20150326
  Serious: Yes (Hospitalization)
  Sender: FDA-Public Use
  Company Number: CA-JNJFOC-20140702684

PATIENT
  Age: 26 Year
  Sex: Female
  Weight: 112.8 kg

DRUGS (3)
  1. REMICADE [Suspect]
     Active Substance: INFLIXIMAB
     Indication: RHEUMATOID ARTHRITIS
     Dosage: INDUCTION DOSE
     Route: 042
     Dates: start: 20140611
  2. PREDNISONE. [Concomitant]
     Active Substance: PREDNISONE
     Route: 048
  3. REMICADE [Suspect]
     Active Substance: INFLIXIMAB
     Indication: RHEUMATOID ARTHRITIS
     Dosage: INDUCTION DOSE
     Route: 042
     Dates: start: 20140529

REACTIONS (7)
  - Pruritus [Recovered/Resolved]
  - Pruritus [Unknown]
  - Rash [Not Recovered/Not Resolved]
  - Chest pain [Unknown]
  - Tenderness [Unknown]
  - Infusion related reaction [Recovered/Resolved]
  - Headache [Unknown]

NARRATIVE: CASE EVENT DATE: 2014
